FAERS Safety Report 24408439 (Version 1)
Quarter: 2024Q4

REPORT INFORMATION
  Report Type: Spontaneous
  Country: US (occurrence: US)
  Receive Date: 20241007
  Receipt Date: 20241007
  Transmission Date: 20250114
  Serious: No
  Sender: UNITED EXCHANGE
  Company Number: US-United Exchange Corporation-2162603

PATIENT
  Sex: Female

DRUGS (6)
  1. CVS MEDICATED HEAT 1 CT [Suspect]
     Active Substance: CAPSAICIN
     Indication: Pain
     Dates: start: 20240918, end: 20240918
  2. CVS MEDICATED HEAT 1 CT [Suspect]
     Active Substance: CAPSAICIN
     Indication: Contusion
  3. CVS MEDICATED HEAT 1 CT [Suspect]
     Active Substance: CAPSAICIN
     Indication: Ligament sprain
  4. CVS MEDICATED HEAT 1 CT [Suspect]
     Active Substance: CAPSAICIN
     Indication: Muscle strain
  5. CVS MEDICATED HEAT 1 CT [Suspect]
     Active Substance: CAPSAICIN
     Indication: Back pain
  6. CVS MEDICATED HEAT 1 CT [Suspect]
     Active Substance: CAPSAICIN
     Indication: Arthritis

REACTIONS (1)
  - Skin burning sensation [Recovered/Resolved]

NARRATIVE: CASE EVENT DATE: 20240918
